FAERS Safety Report 4348928-5 (Version None)
Quarter: 2004Q1

REPORT INFORMATION
  Report Type: 
  Country: None (occurrence: None)
  Receive Date: 20040325
  Receipt Date: 20040202
  Transmission Date: 20041129
  Serious: No
  Sender: FDA-Public Use
  Company Number: USA031151720

PATIENT
  Age: 74 Year
  Sex: Female
  Weight: 65 kg

DRUGS (5)
  1. FORTEO [Suspect]
     Indication: OSTEOPOROSIS
     Dosage: 20 UG/DAY
     Dates: start: 20030701
  2. ASPIRIN [Concomitant]
  3. VITAMINS NOS [Concomitant]
  4. NORVASC [Concomitant]
  5. PREMARIN [Concomitant]

REACTIONS (6)
  - DYSGEUSIA [None]
  - INJECTION SITE BURNING [None]
  - INJECTION SITE DISCOLOURATION [None]
  - INJECTION SITE HAEMORRHAGE [None]
  - POLLAKIURIA [None]
  - URINE ABNORMALITY [None]
